FAERS Safety Report 13383762 (Version 1)
Quarter: 2017Q1

REPORT INFORMATION
  Report Type: Report from Study
  Country: US (occurrence: US)
  Receive Date: 20170329
  Receipt Date: 20170329
  Transmission Date: 20170429
  Serious: Yes (Other)
  Sender: FDA-Public Use
  Company Number: US-AMGEN-USASL2017046665

PATIENT
  Age: 66 Year
  Sex: Female

DRUGS (1)
  1. REPATHA [Suspect]
     Active Substance: EVOLOCUMAB
     Indication: HYPERCHOLESTEROLAEMIA
     Dosage: 140 MG, Q2WK
     Route: 065

REACTIONS (8)
  - Blood pressure increased [Unknown]
  - Tremor [Unknown]
  - Dizziness [Unknown]
  - Vertigo [Unknown]
  - Myalgia [Unknown]
  - Asthenia [Unknown]
  - Fall [Unknown]
  - Incontinence [Unknown]
